FAERS Safety Report 7074457 (Version 38)
Quarter: 2013Q3

REPORT INFORMATION
  Report Type: Report from Study
  Country: CA (occurrence: CA)
  Receive Date: 20090806
  Receipt Date: 20130823
  Transmission Date: 20140515
  Serious: Yes (Death, Hospitalization, Other)
  Sender: FDA-Public Use
  Company Number: PHHY2009CA21334

PATIENT
  Age: 85 Year
  Sex: Female

DRUGS (5)
  1. SANDOSTATIN LAR [Suspect]
     Indication: NEUROENDOCRINE TUMOUR
     Dosage: 30 MG, EVERY FOUR WEEKS
     Route: 030
     Dates: start: 20090523
  2. SANDOSTATIN LAR [Suspect]
     Dosage: 30 MG, EVERY 4 WEEKS
     Route: 030
  3. SANDOSTATIN LAR [Suspect]
     Dosage: 30 MG, EVERY 4 WEEKS
     Route: 030
  4. SANDOSTATIN LAR [Suspect]
     Dosage: 30 MG, ONCE IN A MONTH
     Route: 030
  5. SANDOSTATIN LAR [Suspect]
     Dosage: 30 MG, ONCE A MONTH
     Route: 030
     Dates: end: 20130402

REACTIONS (12)
  - Death [Fatal]
  - Terminal state [Unknown]
  - Blood pressure systolic increased [Unknown]
  - Wrist fracture [Unknown]
  - Fall [Unknown]
  - Blood pressure diastolic decreased [Unknown]
  - Heart rate decreased [Unknown]
  - Vomiting [Unknown]
  - Memory impairment [Unknown]
  - Gait disturbance [Unknown]
  - Injection site pain [Unknown]
  - Blood glucose increased [Unknown]
